FAERS Safety Report 13704552 (Version 1)
Quarter: 2017Q2

REPORT INFORMATION
  Report Type: Report from Study
  Country: None (occurrence: US)
  Receive Date: 20170630
  Receipt Date: 20170630
  Transmission Date: 20170830
  Serious: Yes (Other)
  Sender: FDA-Public Use
  Company Number: US-ABBVIE-17K-163-1958076-00

PATIENT
  Sex: Female

DRUGS (2)
  1. HUMIRA [Suspect]
     Active Substance: ADALIMUMAB
     Route: 058
     Dates: start: 20170411, end: 201706
  2. HUMIRA [Suspect]
     Active Substance: ADALIMUMAB
     Indication: RHEUMATOID ARTHRITIS
     Route: 058
     Dates: start: 2007, end: 201604

REACTIONS (15)
  - Procedural complication [Unknown]
  - Joint stiffness [Unknown]
  - Anxiety [Unknown]
  - Hypersensitivity [Unknown]
  - Asthma [Unknown]
  - Onychalgia [Unknown]
  - Surgical failure [Unknown]
  - Musculoskeletal stiffness [Unknown]
  - Peripheral swelling [Unknown]
  - Ingrowing nail [Unknown]
  - Accident [Unknown]
  - Ankle fracture [Unknown]
  - Nasal congestion [Unknown]
  - Arthralgia [Unknown]
  - Tenderness [Unknown]

NARRATIVE: CASE EVENT DATE: 2016
